FAERS Safety Report 7257211-X (Version None)
Quarter: 2011Q1

REPORT INFORMATION
  Report Type: 
  Country: None (occurrence: None)
  Receive Date: 20110129
  Receipt Date: 20100624
  Transmission Date: 20110831
  Serious: No
  Sender: FDA-Public Use
  Company Number: US-ABBOTT-10P-163-0654089-00

PATIENT
  Sex: Female
  Weight: 78.088 kg

DRUGS (2)
  1. METOPROLOL [Concomitant]
     Indication: HEART RATE IRREGULAR
  2. HUMIRA [Suspect]
     Indication: PSORIATIC ARTHROPATHY
     Dates: start: 20100603

REACTIONS (1)
  - WRONG TECHNIQUE IN DRUG USAGE PROCESS [None]
